FAERS Safety Report 4778162-6 (Version None)
Quarter: 2005Q3

REPORT INFORMATION
  Report Type: 
  Country: None (occurrence: None)
  Receive Date: 20050922
  Receipt Date: 20050908
  Transmission Date: 20060218
  Serious: Yes (Hospitalization)
  Sender: FDA-Public Use
  Company Number: US-2005-018779

PATIENT
  Age: 53 Year
  Sex: Female

DRUGS (1)
  1. BETASERON [Suspect]
     Indication: MULTIPLE SCLEROSIS
     Dosage: UNK, 3X/WEEK, SUBCUTANEOUS
     Route: 058
     Dates: start: 20020821

REACTIONS (4)
  - BIPOLAR DISORDER [None]
  - DEPRESSION [None]
  - INSOMNIA [None]
  - ORAL INTAKE REDUCED [None]
